FAERS Safety Report 16827730 (Version 22)
Quarter: 2025Q3

REPORT INFORMATION
  Report Type: Spontaneous
  Country: US (occurrence: US)
  Receive Date: 20190919
  Receipt Date: 20250818
  Transmission Date: 20251021
  Serious: Yes (Other)
  Sender: PFIZER
  Company Number: US-PFIZER INC-2019401855

PATIENT
  Age: 66 Year
  Sex: Male
  Weight: 73.48 kg

DRUGS (4)
  1. XELJANZ [Suspect]
     Active Substance: TOFACITINIB CITRATE
     Indication: Colitis ulcerative
     Dosage: 5 MG, 2X/DAY
     Route: 048
     Dates: start: 2019
  2. XELJANZ [Suspect]
     Active Substance: TOFACITINIB CITRATE
     Indication: Gastrooesophageal reflux disease
     Dosage: 10 MG, 2X/DAY
     Route: 048
     Dates: start: 202001
  3. XELJANZ [Suspect]
     Active Substance: TOFACITINIB CITRATE
     Indication: Arthralgia
  4. STELARA [Concomitant]
     Active Substance: USTEKINUMAB
     Route: 042

REACTIONS (14)
  - Knee operation [Unknown]
  - Therapeutic response unexpected [Unknown]
  - Intentional product use issue [Unknown]
  - Nasopharyngitis [Not Recovered/Not Resolved]
  - Influenza [Unknown]
  - Sinusitis [Unknown]
  - Illness [Unknown]
  - Visual impairment [Unknown]
  - Abdominal pain upper [Unknown]
  - Nausea [Unknown]
  - Lipids increased [Unknown]
  - Joint swelling [Not Recovered/Not Resolved]
  - Inflammatory pain [Unknown]
  - Arthralgia [Recovering/Resolving]

NARRATIVE: CASE EVENT DATE: 20200225
